FAERS Safety Report 25496215 (Version 1)
Quarter: 2025Q2

REPORT INFORMATION
  Report Type: Spontaneous
  Country: AU (occurrence: AU)
  Receive Date: 20250630
  Receipt Date: 20250630
  Transmission Date: 20250717
  Serious: Yes (Other)
  Sender: SANDOZ
  Company Number: AU-ASPEN-AUS2025AU003714

PATIENT
  Age: 33 Year
  Sex: Female

DRUGS (10)
  1. EVEROLIMUS [Suspect]
     Active Substance: EVEROLIMUS
     Indication: Immunosuppression
     Route: 065
  2. MYCOPHENOLATE MOFETIL [Suspect]
     Active Substance: MYCOPHENOLATE MOFETIL
     Indication: Immunosuppression
     Dosage: 1000 MG, BID
     Route: 065
  3. METHYLPREDNISOLONE [Suspect]
     Active Substance: METHYLPREDNISOLONE
     Indication: Immunosuppression
     Route: 065
  4. PREDNISOLONE [Suspect]
     Active Substance: PREDNISOLONE
     Dosage: 1 MG, QD
     Route: 065
  5. PREDNISOLONE [Suspect]
     Active Substance: PREDNISOLONE
     Indication: Immunosuppression
     Dosage: 5 MG, QD
     Route: 065
  6. TACROLIMUS [Suspect]
     Active Substance: TACROLIMUS
     Indication: Immunosuppression
     Dosage: 8 MG, QD
     Route: 065
  7. MEROPENEM [Concomitant]
     Active Substance: MEROPENEM
     Indication: Bacterial infection
     Route: 065
  8. MEROPENEM [Concomitant]
     Active Substance: MEROPENEM
     Indication: Bacterial infection
     Route: 065
  9. RIBAVIRIN [Concomitant]
     Active Substance: RIBAVIRIN
     Indication: Bacterial infection
     Route: 065
  10. RIBAVIRIN [Concomitant]
     Active Substance: RIBAVIRIN
     Indication: Bacterial infection
     Route: 065

REACTIONS (4)
  - Complications of transplanted lung [Unknown]
  - Pseudomonas infection [Unknown]
  - Transplant rejection [Unknown]
  - Off label use [Unknown]
